FAERS Safety Report 8907784 (Version 2)
Quarter: 2012Q4

REPORT INFORMATION
  Report Type: 
  Country: NZ (occurrence: NZ)
  Receive Date: 20121114
  Receipt Date: 20121126
  Transmission Date: 20130627
  Serious: Yes (Other)
  Sender: FDA-Public Use
  Company Number: PHHY2011NZ110199

PATIENT
  Age: 69 Year
  Sex: Female

DRUGS (3)
  1. ACLASTA [Suspect]
     Indication: OSTEOPOROSIS
     Dosage: 5 mg/100ml
     Route: 042
     Dates: start: 20111114
  2. CALCIUM CARBONATE [Concomitant]
     Dosage: 1.25 g, BID
     Route: 048
  3. PARACETAMOL [Concomitant]
     Dosage: 1 g, TID
     Route: 048

REACTIONS (16)
  - Wound [Not Recovered/Not Resolved]
  - Impaired healing [Not Recovered/Not Resolved]
  - Dermatitis allergic [Recovering/Resolving]
  - Pruritus [Recovering/Resolving]
  - Urticaria [Recovering/Resolving]
  - Rash [Unknown]
  - Blister [Unknown]
  - Skin burning sensation [Unknown]
  - Rash erythematous [Unknown]
  - Feeling abnormal [Unknown]
  - Discomfort [Unknown]
  - Gingival pain [Unknown]
  - Paraesthesia [Unknown]
  - Insomnia [Unknown]
  - Blood pressure increased [Unknown]
  - Pain [Unknown]
